FAERS Safety Report 8862133 (Version 1)
Quarter: 2012Q4

REPORT INFORMATION
  Report Type: 
  Country: ES (occurrence: ES)
  Receive Date: 20121026
  Receipt Date: 20121026
  Transmission Date: 20130627
  Serious: Yes (Other)
  Sender: FDA-Public Use
  Company Number: ES-MPIJNJ-2012-07266

PATIENT

DRUGS (2)
  1. VELCADE [Suspect]
     Indication: PRODUCT USED FOR UNKNOWN INDICATION
     Dosage: 1.3 mg/m2, UNK
     Dates: start: 2012, end: 2012
  2. VELCADE [Suspect]
     Dosage: 1 UNK, UNK
     Dates: start: 2012, end: 2012

REACTIONS (1)
  - Gastrointestinal toxicity [Unknown]
